FAERS Safety Report 16072895 (Version 2)
Quarter: 2019Q1

REPORT INFORMATION
  Report Type: Report from Study
  Country: None (occurrence: ES)
  Receive Date: 20190314
  Receipt Date: 20190318
  Transmission Date: 20190418
  Serious: Yes (Hospitalization, Congenital Anomaly, Other)
  Sender: FDA-Public Use
  Company Number: ES-ABBVIE-19S-144-2699771-00

PATIENT
  Age: 50 Year
  Sex: Male
  Weight: 70 kg

DRUGS (1)
  1. DUODOPA [Suspect]
     Active Substance: CARBIDOPA\LEVODOPA
     Indication: PARKINSON^S DISEASE
     Route: 050
     Dates: start: 20180212

REACTIONS (5)
  - Myocardial infarction [Unknown]
  - Freezing phenomenon [Unknown]
  - Hypertension [Not Recovered/Not Resolved]
  - Angina pectoris [Unknown]
  - Blood test abnormal [Not Recovered/Not Resolved]

NARRATIVE: CASE EVENT DATE: 201903
